FAERS Safety Report 9148637 (Version 1)
Quarter: 2013Q1

REPORT INFORMATION
  Report Type: Spontaneous
  Country: US (occurrence: None)
  Receive Date: 20130228
  Receipt Date: 20130228
  Transmission Date: 20140127
  Serious: Yes (Hospitalization)
  Sender: FDA-Public Use
  Company Number: None

PATIENT
  Age: 70 Year
  Sex: Male
  Weight: 80.29 kg

DRUGS (9)
  1. VELCADE [Suspect]
     Indication: PLASMA CELL MYELOMA
     Dates: start: 20121217, end: 20130124
  2. REVLIMID [Suspect]
  3. DECADRON [Concomitant]
  4. ACYCLOVIR [Concomitant]
  5. ASPIRIN B1 [Concomitant]
  6. BACTRIM [Concomitant]
  7. MULTIVITAMIN [Concomitant]
  8. TYLENOL [Concomitant]
  9. ZOMETA [Concomitant]

REACTIONS (2)
  - Schwannoma [None]
  - Gastric disorder [None]
